FAERS Safety Report 11906055 (Version 1)
Quarter: 2016Q1

REPORT INFORMATION
  Report Type: Spontaneous
  Country: US (occurrence: None)
  Receive Date: 20160108
  Receipt Date: 20160108
  Transmission Date: 20160526
  Serious: Yes (Other)
  Sender: FDA-Public Use
  Company Number: None

PATIENT
  Age: 56 Year
  Sex: Female
  Weight: 67 kg

DRUGS (15)
  1. VOLTAREN [Concomitant]
     Active Substance: DICLOFENAC SODIUM
  2. MAGNESIUM [Concomitant]
     Active Substance: MAGNESIUM
  3. ASPIRIN. [Concomitant]
     Active Substance: ASPIRIN
  4. KRILL OIL [Concomitant]
     Active Substance: DIETARY SUPPLEMENT
  5. SIMPONI [Suspect]
     Active Substance: GOLIMUMAB
     Indication: SPONDYLOARTHROPATHY
     Route: 058
     Dates: start: 20150904, end: 20151002
  6. CENTRUM [Concomitant]
     Active Substance: VITAMINS
  7. ADALIMUMAB [Concomitant]
     Active Substance: ADALIMUMAB
  8. METHYLPREDNISOLONE. [Concomitant]
     Active Substance: METHYLPREDNISOLONE
  9. OTEZLA [Concomitant]
     Active Substance: APREMILAST
  10. IODINE [Concomitant]
     Active Substance: IODINE
  11. FLAXSEED [Concomitant]
     Active Substance: FLAX SEED
  12. ETANERCEPT [Concomitant]
     Active Substance: ETANERCEPT
  13. CALCIUM [Concomitant]
     Active Substance: CALCIUM
  14. CERTOLIZUMAB [Concomitant]
     Active Substance: CERTOLIZUMAB
  15. METHOTREXATE [Concomitant]
     Active Substance: METHOTREXATE

REACTIONS (1)
  - Alopecia [None]

NARRATIVE: CASE EVENT DATE: 20150904
